FAERS Safety Report 5662885-0 (Version None)
Quarter: 2008Q1

REPORT INFORMATION
  Report Type: 
  Country: None (occurrence: None)
  Receive Date: 20080311
  Receipt Date: 20080311
  Transmission Date: 20080703
  Serious: Yes (Other)
  Sender: FDA-Public Use
  Company Number: None

PATIENT
  Age: 49 Year
  Sex: Female
  Weight: 58.0604 kg

DRUGS (1)
  1. CHANTIX [Suspect]
     Indication: SMOKING CESSATION THERAPY
     Dates: start: 20071026, end: 20071220

REACTIONS (6)
  - AGGRESSION [None]
  - ALCOHOL USE [None]
  - CONDITION AGGRAVATED [None]
  - DEPRESSION [None]
  - PHYSICAL ASSAULT [None]
  - SUICIDAL IDEATION [None]
